FAERS Safety Report 8206861-2 (Version None)
Quarter: 2012Q1

REPORT INFORMATION
  Report Type: 
  Country: None (occurrence: None)
  Receive Date: 20120314
  Receipt Date: 20120302
  Transmission Date: 20120608
  Serious: Yes (Other)
  Sender: FDA-Public Use
  Company Number: GB-ACCORD-012649

PATIENT
  Sex: Female

DRUGS (1)
  1. TOPIRAMATE [Suspect]
     Dosage: 100 MG, UNK
     Route: 048
     Dates: start: 20120201

REACTIONS (2)
  - CONVULSION [None]
  - DRUG INEFFECTIVE [None]
